FAERS Safety Report 5827180-5 (Version None)
Quarter: 2008Q3

REPORT INFORMATION
  Report Type: 
  Country: None (occurrence: None)
  Receive Date: 20080730
  Receipt Date: 20080721
  Transmission Date: 20090109
  Serious: Yes (Hospitalization)
  Sender: FDA-Public Use
  Company Number: US-JNJFOC-20080401543

PATIENT
  Sex: Male
  Weight: 158.76 kg

DRUGS (7)
  1. FENTANYL TRANSDERMAL SYSTEM [Suspect]
     Indication: ABDOMINAL PAIN UPPER
     Route: 062
  2. VERAPAMIL EXTENDED-RELEASE [Concomitant]
     Indication: BLOOD PRESSURE
     Route: 048
  3. ACTOS [Concomitant]
     Indication: DIABETES MELLITUS
     Route: 048
  4. GLUCOTROL XL [Concomitant]
     Indication: DIABETES MELLITUS
     Route: 048
  5. PRAVACHOL [Concomitant]
     Indication: BLOOD CHOLESTEROL INCREASED
     Route: 048
  6. COZAAR [Concomitant]
     Indication: BLOOD PRESSURE
     Route: 048
  7. DACOGEN [Concomitant]
     Indication: LEUKAEMIA
     Dosage: DAILY FOR 5 DAYS EACH MONTH
     Route: 042

REACTIONS (9)
  - ABNORMAL BEHAVIOUR [None]
  - DYSPNOEA [None]
  - FEELING ABNORMAL [None]
  - GAIT DISTURBANCE [None]
  - HALLUCINATION [None]
  - HYPOKINESIA [None]
  - INCOHERENT [None]
  - PHARMACEUTICAL PRODUCT COMPLAINT [None]
  - URINARY RETENTION [None]
